FAERS Safety Report 11618998 (Version 1)
Quarter: 2015Q4

REPORT INFORMATION
  Report Type: Report from Study
  Country: KR (occurrence: KR)
  Receive Date: 20151012
  Receipt Date: 20151012
  Transmission Date: 20160304
  Serious: No
  Sender: FDA-Public Use
  Company Number: PHHY2015KR123325

PATIENT
  Age: 67 Year
  Sex: Female

DRUGS (9)
  1. TASIGNA [Suspect]
     Active Substance: NILOTINIB
     Indication: CHRONIC MYELOID LEUKAEMIA
     Dosage: 600 MG, QD
     Route: 048
     Dates: start: 20130416, end: 20130711
  2. COZAAR [Concomitant]
     Active Substance: LOSARTAN POTASSIUM
     Indication: HYPERTENSION
     Dosage: 50 ML, UNK
     Route: 048
     Dates: start: 20130419, end: 20130503
  3. HERBEN [Concomitant]
     Indication: HYPERTENSION
     Dosage: 60 MG, UNK
     Route: 048
     Dates: start: 20121115
  4. TRITACE [Concomitant]
     Active Substance: RAMIPRIL
     Indication: HYPERTENSION
     Dosage: 5 MG, UNK
     Route: 048
     Dates: start: 20110324
  5. VASTINAN MR [Concomitant]
     Indication: CARDIAC FAILURE
     Dosage: 35 MG, UNK
     Route: 048
     Dates: start: 20110421
  6. APETROL ES [Concomitant]
     Indication: PROPHYLAXIS
     Dosage: 5.2 ML, UNK
     Route: 048
     Dates: start: 20130422, end: 20130503
  7. URSA [Concomitant]
     Indication: PROPHYLAXIS
     Dosage: 600 MG, UNK
     Route: 048
     Dates: start: 20130423, end: 20130503
  8. DILATREND [Concomitant]
     Active Substance: CARVEDILOL
     Indication: HYPERTENSION
     Dosage: 25 MG, UNK
     Route: 048
     Dates: start: 20130407
  9. SELBEX [Concomitant]
     Active Substance: TEPRENONE
     Indication: PROPHYLAXIS
     Dosage: 50 MG, UNK
     Route: 048
     Dates: start: 20120709

REACTIONS (2)
  - Vomiting [Recovered/Resolved]
  - Nausea [Recovered/Resolved]

NARRATIVE: CASE EVENT DATE: 20130416
